FAERS Safety Report 16483275 (Version 1)
Quarter: 2019Q2

REPORT INFORMATION
  Report Type: Spontaneous
  Country: US (occurrence: US)
  Receive Date: 20190627
  Receipt Date: 20190627
  Transmission Date: 20190711
  Serious: No
  Sender: FDA-Public Use
  Company Number: US-MYLANLABS-2019M1054826

PATIENT
  Sex: Female
  Weight: 86 kg

DRUGS (1)
  1. LIDOCAINE PATCH [Suspect]
     Active Substance: LIDOCAINE
     Indication: NECK PAIN
     Dosage: 1 DOSAGE FORM, BID
     Route: 062
     Dates: start: 2019, end: 20190607

REACTIONS (3)
  - Off label use [Unknown]
  - Product adhesion issue [Not Recovered/Not Resolved]
  - Product quality issue [Not Recovered/Not Resolved]
